FAERS Safety Report 20061049 (Version 1)
Quarter: 2021Q4

REPORT INFORMATION
  Report Type: Spontaneous
  Country: FR (occurrence: FR)
  Receive Date: 20211112
  Receipt Date: 20211112
  Transmission Date: 20220303
  Serious: Yes (Life-Threatening, Other)
  Sender: FDA-Public Use
  Company Number: None

PATIENT
  Age: 64 Year
  Sex: Male
  Weight: 84.4 kg

DRUGS (1)
  1. ELIQUIS [Suspect]
     Active Substance: APIXABAN
     Indication: Cerebrovascular accident prophylaxis
     Dosage: UNK
     Route: 048
     Dates: start: 20211029, end: 20211029

REACTIONS (4)
  - Shock haemorrhagic [Recovered/Resolved]
  - Product communication issue [Recovered/Resolved]
  - Product prescribing error [Recovered/Resolved]
  - Failure to suspend medication [Recovered/Resolved]

NARRATIVE: CASE EVENT DATE: 20211029
